FAERS Safety Report 16090891 (Version 1)
Quarter: 2019Q1

REPORT INFORMATION
  Report Type: Report from Study
  Country: IT (occurrence: IT)
  Receive Date: 20190319
  Receipt Date: 20190319
  Transmission Date: 20190418
  Serious: Yes (Other)
  Sender: FDA-Public Use
  Company Number: IT-PFIZER INC-2019112567

PATIENT
  Age: 63 Year
  Sex: Male

DRUGS (12)
  1. BROMAZEPAM [Interacting]
     Active Substance: BROMAZEPAM
     Dosage: UNK
  2. RIVOTRIL [Suspect]
     Active Substance: CLONAZEPAM
     Dosage: 20 GTT, 1X/DAY
     Route: 048
  3. EXPOSE [Concomitant]
     Active Substance: EPERISONE HYDROCHLORIDE
  4. DIDROGYL [Concomitant]
     Active Substance: CALCIFEDIOL
  5. LIORESAL [Concomitant]
     Active Substance: BACLOFEN
     Dosage: UNK
  6. REMERON [Concomitant]
     Active Substance: MIRTAZAPINE
     Dosage: UNK
  7. LYRICA [Suspect]
     Active Substance: PREGABALIN
     Dosage: 300 MG, 1X/DAY
  8. MINIAS [Interacting]
     Active Substance: LORMETAZEPAM
     Dosage: 30 GTT, 1X/DAY
  9. TEGRETOL [Concomitant]
     Active Substance: CARBAMAZEPINE
  10. OMEPRAZOLE SODIUM [Concomitant]
     Active Substance: OMEPRAZOLE SODIUM
     Dosage: UNK
  11. TARGIN [Suspect]
     Active Substance: NALOXONE HYDROCHLORIDE\OXYCODONE HYDROCHLORIDE
     Dosage: 1 DF, 1X/DAY
  12. TEGRETOL XR [Concomitant]
     Active Substance: CARBAMAZEPINE

REACTIONS (3)
  - Disturbance in attention [Recovering/Resolving]
  - Prescribed overdose [Recovering/Resolving]
  - Drug interaction [Recovering/Resolving]

NARRATIVE: CASE EVENT DATE: 20181217
